FAERS Safety Report 8815731 (Version 1)
Quarter: 2012Q4

REPORT INFORMATION
  Report Type: 
  Country: US (occurrence: US)
  Receive Date: 20120928
  Receipt Date: 20120928
  Transmission Date: 20130627
  Serious: Yes (Death)
  Sender: FDA-Public Use
  Company Number: US-ROCHE-1134042

PATIENT
  Sex: Female

DRUGS (4)
  1. HERCEPTIN [Suspect]
     Indication: BREAST CANCER
     Dosage: loading dose
     Route: 065
     Dates: start: 19990805
  2. HERCEPTIN [Suspect]
     Indication: METASTASES TO LUNG
     Dosage: maintenance dose
     Route: 065
  3. HERCEPTIN [Suspect]
     Indication: METASTASES TO BONE
  4. HERCEPTIN [Suspect]
     Indication: METASTASIS

REACTIONS (4)
  - Death [Fatal]
  - Nausea [Unknown]
  - Abdominal pain upper [Unknown]
  - Chills [Unknown]
